FAERS Safety Report 12637248 (Version 1)
Quarter: 2016Q3

REPORT INFORMATION
  Report Type: Spontaneous
  Country: US (occurrence: US)
  Receive Date: 20160809
  Receipt Date: 20160809
  Transmission Date: 20161109
  Serious: No
  Sender: FDA-Public Use
  Company Number: US-TEVA-674848USA

PATIENT
  Sex: Female

DRUGS (4)
  1. COPAXONE [Suspect]
     Active Substance: GLATIRAMER ACETATE
     Indication: MULTIPLE SCLEROSIS
     Route: 058
     Dates: start: 20140716
  2. AMPYRA [Concomitant]
     Active Substance: DALFAMPRIDINE
  3. FORTEO [Concomitant]
     Active Substance: TERIPARATIDE
  4. PROVIGIL [Concomitant]
     Active Substance: MODAFINIL

REACTIONS (3)
  - Pollakiuria [Unknown]
  - Dizziness [Unknown]
  - Dry mouth [Unknown]

NARRATIVE: CASE EVENT DATE: 2016
